FAERS Safety Report 9549128 (Version 4)
Quarter: 2013Q4

REPORT INFORMATION
  Report Type: Spontaneous
  Country: IT (occurrence: IT)
  Receive Date: 20130924
  Receipt Date: 20131210
  Transmission Date: 20140711
  Serious: Yes (Other)
  Sender: FDA-Public Use
  Company Number: IT-PFIZER INC-2013273457

PATIENT
  Age: 41 Year
  Sex: Male

DRUGS (4)
  1. FARMORUBICINA [Suspect]
     Indication: NON-HODGKIN^S LYMPHOMA
     Dosage: 190 MG, CYCLIC
     Route: 042
     Dates: start: 20060701, end: 20060830
  2. ETOPOSIDE [Concomitant]
     Indication: NON-HODGKIN^S LYMPHOMA
     Dosage: 290 MG, UNK
     Route: 042
     Dates: start: 20060701, end: 20060830
  3. MABTHERA [Concomitant]
     Indication: NON-HODGKIN^S LYMPHOMA
     Dosage: 730 MG, UNK
     Route: 042
     Dates: start: 20060630, end: 20060830
  4. HOLOXAN [Concomitant]
     Indication: NON-HODGKIN^S LYMPHOMA
     Dosage: 2900 MG, UNK
     Route: 042
     Dates: start: 20060701, end: 20060830

REACTIONS (3)
  - Ventricular hypokinesia [Not Recovered/Not Resolved]
  - Ejection fraction decreased [Not Recovered/Not Resolved]
  - Congestive cardiomyopathy [Not Recovered/Not Resolved]
